FAERS Safety Report 9203573 (Version 1)
Quarter: 2013Q1

REPORT INFORMATION
  Report Type: Spontaneous
  Country: PK (occurrence: None)
  Receive Date: 20130329
  Receipt Date: 20130329
  Transmission Date: 20140127
  Serious: Yes (Life-Threatening)
  Sender: FDA-Public Use
  Company Number: SYM-2013-01841

PATIENT
  Age: 60 Year
  Sex: Male

DRUGS (1)
  1. FLAGYL [Suspect]
     Indication: DIARRHOEA
     Route: 048
     Dates: start: 20130313, end: 20130313

REACTIONS (1)
  - Anaphylactic reaction [None]
